FAERS Safety Report 8915325 (Version 1)
Quarter: 2012Q4

REPORT INFORMATION
  Report Type: 
  Country: US (occurrence: US)
  Receive Date: 20121119
  Receipt Date: 20121119
  Transmission Date: 20130627
  Serious: Yes (Other)
  Sender: FDA-Public Use
  Company Number: US-PFIZER INC-2012287311

PATIENT
  Sex: Male

DRUGS (1)
  1. LYRICA [Suspect]
     Indication: FOOT DISCOMFORT
     Dosage: 75 mg, daily
     Dates: start: 201210, end: 2012

REACTIONS (1)
  - Suicidal ideation [Unknown]
